FAERS Safety Report 8967500 (Version 1)
Quarter: 2012Q4

REPORT INFORMATION
  Report Type: 
  Country: US (occurrence: US)
  Receive Date: 20121217
  Receipt Date: 20121217
  Transmission Date: 20130627
  Serious: No
  Sender: FDA-Public Use
  Company Number: US-BIOGENIDEC-2012BI059368

PATIENT
  Sex: Female

DRUGS (3)
  1. TYSABRI [Suspect]
     Indication: MULTIPLE SCLEROSIS
     Route: 042
     Dates: start: 20071226, end: 20090409
  2. TYSABRI [Suspect]
     Indication: MULTIPLE SCLEROSIS
     Route: 042
     Dates: start: 20101214
  3. ANTIBIOTICS [Concomitant]
     Indication: PRODUCT USED FOR UNKNOWN INDICATION

REACTIONS (12)
  - Therapeutic procedure [Unknown]
  - Antibiotic therapy [Unknown]
  - Feeling abnormal [Unknown]
  - Anxiety [Unknown]
  - Tension [Unknown]
  - General symptom [Unknown]
  - Adjustment disorder [Unknown]
  - Activities of daily living impaired [Unknown]
  - Impaired driving ability [Unknown]
  - Frustration [Unknown]
  - Disability [Unknown]
  - Urinary tract infection [Unknown]
